FAERS Safety Report 17437674 (Version 2)
Quarter: 2020Q2

REPORT INFORMATION
  Report Type: Spontaneous
  Country: BE (occurrence: BE)
  Receive Date: 20200219
  Receipt Date: 20200424
  Transmission Date: 20200713
  Serious: Yes (Disabling, Other)
  Sender: FDA-Public Use
  Company Number: BE-ASTRAZENECA-2020SE22641

PATIENT
  Age: 29124 Day
  Sex: Male
  Weight: 79 kg

DRUGS (1)
  1. FASENRA [Suspect]
     Active Substance: BENRALIZUMAB
     Route: 058

REACTIONS (5)
  - Toxicity to various agents [Unknown]
  - Hyperventilation [Unknown]
  - Nightmare [Unknown]
  - Palpitations [Unknown]
  - Malaise [Unknown]

NARRATIVE: CASE EVENT DATE: 20190821
